FAERS Safety Report 7221972-6 (Version None)
Quarter: 2011Q1

REPORT INFORMATION
  Report Type: 
  Country: None (occurrence: None)
  Receive Date: 20110112
  Receipt Date: 20110111
  Transmission Date: 20110831
  Serious: Yes (Hospitalization)
  Sender: FDA-Public Use
  Company Number: B0693234A

PATIENT
  Sex: Male

DRUGS (1)
  1. AUGMENTIN '125' [Suspect]
     Indication: TONSILLITIS
     Dosage: 3TAB PER DAY
     Route: 048
     Dates: start: 20101223, end: 20101226

REACTIONS (4)
  - OEDEMA PERIPHERAL [None]
  - RASH GENERALISED [None]
  - PRURITUS [None]
  - PERIORBITAL OEDEMA [None]
